FAERS Safety Report 8183995-2 (Version None)
Quarter: 2012Q1

REPORT INFORMATION
  Report Type: 
  Country: None (occurrence: None)
  Receive Date: 20120305
  Receipt Date: 20120226
  Transmission Date: 20120608
  Serious: No
  Sender: FDA-Public Use
  Company Number: US-BAYER-2012-019952

PATIENT
  Age: 28 Year
  Sex: Female
  Weight: 53 kg

DRUGS (2)
  1. ALEVE (CAPLET) [Suspect]
  2. ANTACIDS [Concomitant]

REACTIONS (2)
  - VOMITING [None]
  - NO ADVERSE EVENT [None]
